FAERS Safety Report 16772259 (Version 1)
Quarter: 2019Q3

REPORT INFORMATION
  Report Type: Spontaneous
  Country: FR (occurrence: FR)
  Receive Date: 20190904
  Receipt Date: 20190904
  Transmission Date: 20191005
  Serious: Yes (Other)
  Sender: FDA-Public Use
  Company Number: FR-PFIZER INC-2019373320

PATIENT
  Age: 20 Year
  Sex: Male

DRUGS (2)
  1. XANAX [Suspect]
     Active Substance: ALPRAZOLAM
     Dosage: 0.5 MG, 1X/DAY
     Route: 048
  2. TUSSIPAX [CODEINE;ETHYLMORPHINE HYDROCHLORIDE] [Suspect]
     Active Substance: CODEINE\ETHYLMORPHINE HYDROCHLORIDE
     Dosage: 4 DF, DAILY
     Route: 048

REACTIONS (2)
  - Drug dependence [Not Recovered/Not Resolved]
  - Prescription form tampering [Not Recovered/Not Resolved]
